FAERS Safety Report 10593121 (Version 1)
Quarter: 2014Q4

REPORT INFORMATION
  Report Type: Spontaneous
  Country: JP (occurrence: JP)
  Receive Date: 20141119
  Receipt Date: 20141119
  Transmission Date: 20150529
  Serious: Yes (Other)
  Sender: FDA-Public Use
  Company Number: JP-MYLANLABS-2014M1010435

PATIENT

DRUGS (5)
  1. PREDNISOLONE TABLETS 1^HOEI^ [Suspect]
     Active Substance: PREDNISOLONE
     Indication: METASTASES TO BONE
     Dosage: 10 MG, UNK
     Route: 048
     Dates: start: 200806
  2. ESTRAMUSTINE PHOSPHATE SODIUM HYDRATE [Suspect]
     Active Substance: ESTRAMUSTINE PHOSPHATE SODIUM
     Indication: METASTASES TO BONE
     Dosage: 4 UNK, UNK
     Route: 048
     Dates: start: 200806
  3. DOCETAXEL. [Suspect]
     Active Substance: DOCETAXEL
     Indication: METASTASES TO BONE
     Dosage: 100 MG, UNK
     Route: 042
     Dates: start: 200805
  4. DOCETAXEL. [Suspect]
     Active Substance: DOCETAXEL
     Dosage: 50 MG, UNK
     Dates: start: 200806
  5. ZOMETA [Suspect]
     Active Substance: ZOLEDRONIC ACID
     Indication: METASTASES TO BONE
     Dosage: 4 UNK, UNK
     Route: 042
     Dates: start: 200805, end: 200910

REACTIONS (2)
  - Subcutaneous abscess [Recovering/Resolving]
  - Osteonecrosis of jaw [Unknown]

NARRATIVE: CASE EVENT DATE: 200912
